FAERS Safety Report 12463124 (Version 3)
Quarter: 2016Q4

REPORT INFORMATION
  Report Type: Spontaneous
  Country: DE (occurrence: DE)
  Receive Date: 20160614
  Receipt Date: 20161028
  Transmission Date: 20170207
  Serious: Yes (Hospitalization)
  Sender: FDA-Public Use
  Company Number: DE-VELOXIS PHARMACEUTICALS-1053761

PATIENT
  Age: 55 Year
  Sex: Male

DRUGS (11)
  1. ASPIRIN. [Concomitant]
     Active Substance: ASPIRIN
  2. ACTRAPID [Concomitant]
     Active Substance: INSULIN HUMAN
  3. COTRIM [Concomitant]
     Active Substance: SULFAMETHOXAZOLE\TRIMETHOPRIM
  4. ENVARSUS XR [Suspect]
     Active Substance: TACROLIMUS
     Indication: TRANSPLANT REJECTION
     Route: 048
  5. MYFORTIC [Concomitant]
     Active Substance: MYCOPHENOLATE SODIUM
  6. PANTOZOL [Concomitant]
     Active Substance: PANTOPRAZOLE SODIUM
  7. BICANORM [Concomitant]
     Active Substance: SODIUM BICARBONATE
  8. VALCYTE [Concomitant]
     Active Substance: VALGANCICLOVIR HYDROCHLORIDE
  9. PROGRAF [Suspect]
     Active Substance: TACROLIMUS\TACROLIMUS ANHYDROUS
  10. TYROSINE [Concomitant]
     Active Substance: TYROSINE
  11. PROTAPHANE [Concomitant]
     Active Substance: INSULIN HUMAN

REACTIONS (5)
  - Anuria [Recovered/Resolved]
  - Transplantation complication [Recovered/Resolved]
  - Transplant dysfunction [Recovered/Resolved]
  - Transplant rejection [Recovered/Resolved]
  - Vascular graft thrombosis [Recovered/Resolved]
